FAERS Safety Report 10527873 (Version 5)
Quarter: 2025Q1

REPORT INFORMATION
  Report Type: Spontaneous
  Country: US (occurrence: US)
  Receive Date: 20141020
  Receipt Date: 20250327
  Transmission Date: 20250409
  Serious: No
  Sender: PFIZER
  Company Number: US-PFIZER INC-2014281600

PATIENT
  Age: 61 Year
  Sex: Male
  Weight: 74.83 kg

DRUGS (5)
  1. BOSULIF [Suspect]
     Active Substance: BOSUTINIB MONOHYDRATE
     Indication: Chronic myeloid leukaemia (in remission)
     Dosage: 500 MG, 1X/DAY (ONCE A DAY WITH FOOD)
     Route: 048
     Dates: start: 20141003
  2. METOPROLOL [Concomitant]
     Active Substance: METOPROLOL
     Dates: start: 201410
  3. SYNTHROID [Concomitant]
     Active Substance: LEVOTHYROXINE SODIUM
     Dates: start: 201111
  4. LISINOPRIL [Concomitant]
     Active Substance: LISINOPRIL
     Dates: start: 2009
  5. ASPIRIN [Concomitant]
     Active Substance: ASPIRIN
     Dates: start: 2009

REACTIONS (3)
  - Nausea [Recovered/Resolved]
  - Vomiting [Recovered/Resolved]
  - Diarrhoea [Not Recovered/Not Resolved]

NARRATIVE: CASE EVENT DATE: 20140101
